FAERS Safety Report 8514908-9 (Version None)
Quarter: 2012Q3

REPORT INFORMATION
  Report Type: 
  Country: None (occurrence: None)
  Receive Date: 20120717
  Receipt Date: 20120702
  Transmission Date: 20120928
  Serious: Yes (Death)
  Sender: FDA-Public Use
  Company Number: GB-ROCHE-1083631

PATIENT
  Age: 43 Year
  Sex: Male
  Weight: 68 kg

DRUGS (8)
  1. PEGASYS [Suspect]
     Indication: HEPATITIS C
     Route: 058
     Dates: start: 20120418, end: 20120420
  2. RIBAVIRIN [Suspect]
     Indication: HEPATITIS C
     Route: 048
     Dates: start: 20120418
  3. ALBUTEROL SULATE [Concomitant]
     Indication: ASTHMA
     Dates: end: 20120421
  4. OMEPRAZOLE [Concomitant]
     Indication: DYSPEPSIA
     Route: 048
     Dates: end: 20120421
  5. DIHYDROCODEINE BITARTRATE INJ [Concomitant]
  6. INCIVO [Suspect]
     Indication: HEPATITIS C
     Route: 048
     Dates: start: 20120418, end: 20120420
  7. BECLOMETHASONE DIPROPIONATE [Concomitant]
     Indication: ASTHMA
     Dates: end: 20120421
  8. DIAZEPAM [Concomitant]
     Indication: ANXIETY
     Route: 048
     Dates: end: 20120421

REACTIONS (3)
  - CARDIAC ARREST [None]
  - BRONCHOPNEUMONIA [None]
  - HYPOXIC-ISCHAEMIC ENCEPHALOPATHY [None]
